FAERS Safety Report 5761236-0 (Version None)
Quarter: 2008Q2

REPORT INFORMATION
  Report Type: 
  Country: None (occurrence: None)
  Receive Date: 20080606
  Receipt Date: 20080603
  Transmission Date: 20081010
  Serious: Yes (Life-Threatening, Hospitalization, Other)
  Sender: FDA-Public Use
  Company Number: PHHO2008ES05887

PATIENT
  Sex: Female

DRUGS (3)
  1. MYFORTIC [Suspect]
     Indication: RENAL TRANSPLANT
     Dosage: UNK
     Dates: end: 20080430
  2. TACROLIMUS COMP-TAC+ [Suspect]
     Indication: RENAL TRANSPLANT
     Dosage: 6 MG /DAY
     Route: 048
     Dates: start: 20080427, end: 20080428
  3. TACROLIMUS COMP-TAC+ [Suspect]
     Dosage: 4MG / DAILY
     Dates: start: 20080504

REACTIONS (6)
  - BIOPSY KIDNEY [None]
  - GRAFT COMPLICATION [None]
  - MICROANGIOPATHIC HAEMOLYTIC ANAEMIA [None]
  - NEPHROPATHY TOXIC [None]
  - RENAL TUBULAR NECROSIS [None]
  - THROMBOCYTOPENIA [None]
